FAERS Safety Report 7510272-2 (Version None)
Quarter: 2011Q2

REPORT INFORMATION
  Report Type: 
  Country: None (occurrence: None)
  Receive Date: 20110527
  Receipt Date: 20100202
  Transmission Date: 20111010
  Serious: No
  Sender: FDA-Public Use
  Company Number: US-BAYER-201014010NA

PATIENT
  Sex: Female
  Weight: 59.091 kg

DRUGS (1)
  1. AVELOX [Suspect]
     Indication: SINUSITIS
     Dosage: 400 MG, UNK
     Route: 048

REACTIONS (2)
  - DIZZINESS [None]
  - VISION BLURRED [None]
